FAERS Safety Report 13122737 (Version 3)
Quarter: 2017Q1

REPORT INFORMATION
  Report Type: Report from Study
  Country: PL (occurrence: PL)
  Receive Date: 20170117
  Receipt Date: 20170320
  Transmission Date: 20170428
  Serious: Yes (Hospitalization)
  Sender: FDA-Public Use
  Company Number: PL-UCBSA-2016049844

PATIENT
  Age: 34 Year
  Sex: Male
  Weight: 178 kg

DRUGS (1)
  1. CERTOLIZUMAB PEGOL [Suspect]
     Active Substance: CERTOLIZUMAB PEGOL
     Indication: PSORIASIS
     Dosage: 400 MG, UNK
     Route: 058
     Dates: start: 20161115, end: 20161227

REACTIONS (1)
  - Bronchitis [Recovered/Resolved]

NARRATIVE: CASE EVENT DATE: 20161224
